FAERS Safety Report 4351410-2 (Version None)
Quarter: 2004Q2

REPORT INFORMATION
  Report Type: 
  Country: None (occurrence: None)
  Receive Date: 20040428
  Receipt Date: 20040413
  Transmission Date: 20050107
  Serious: Yes (Hospitalization)
  Sender: FDA-Public Use
  Company Number: USA040464803

PATIENT
  Age: 30 Year
  Sex: Male

DRUGS (1)
  1. SYMBYAX [Suspect]

REACTIONS (1)
  - DEPRESSION [None]
